FAERS Safety Report 24685568 (Version 2)
Quarter: 2024Q4

REPORT INFORMATION
  Report Type: Spontaneous
  Country: CN (occurrence: CN)
  Receive Date: 20241202
  Receipt Date: 20241206
  Transmission Date: 20250115
  Serious: No
  Sender: REGENERON
  Company Number: CN-SANOFI-02315677

PATIENT
  Age: 77 Year
  Sex: Female

DRUGS (1)
  1. PRALUENT [Suspect]
     Active Substance: ALIROCUMAB
     Indication: Lipids increased
     Dosage: 75 MG EVERY 20 DAYS
     Route: 058

REACTIONS (6)
  - Confusional state [Unknown]
  - Head discomfort [Unknown]
  - Asthenia [Unknown]
  - Gait inability [Unknown]
  - Intentional dose omission [Unknown]
  - Off label use [Unknown]
